FAERS Safety Report 8114197-3 (Version None)
Quarter: 2012Q1

REPORT INFORMATION
  Report Type: 
  Country: None (occurrence: None)
  Receive Date: 20120205
  Receipt Date: 20110426
  Transmission Date: 20120608
  Serious: No
  Sender: FDA-Public Use
  Company Number: US-ALLERGAN-1105782US

PATIENT
  Age: 76 Year
  Sex: Female

DRUGS (8)
  1. BROMFENAC SODIUM [Concomitant]
  2. PRED FORTE [Suspect]
     Dosage: UNK
     Dates: start: 20110329, end: 20110419
  3. NEVANAC [Concomitant]
  4. ZYMAXID [Concomitant]
  5. PRED FORTE [Suspect]
     Indication: POSTOPERATIVE CARE
     Dosage: UNK
     Dates: start: 20110223, end: 20110307
  6. PRED FORTE [Suspect]
     Dosage: UNK
     Dates: start: 20110322, end: 20110329
  7. PRED FORTE [Suspect]
     Dosage: UNK
     Dates: start: 20110308, end: 20110322
  8. REFRESH PLUS [Concomitant]

REACTIONS (3)
  - SKIN WRINKLING [None]
  - VISION BLURRED [None]
  - EYE IRRITATION [None]
